FAERS Safety Report 7977910-1 (Version None)
Quarter: 2011Q4

REPORT INFORMATION
  Report Type: 
  Country: None (occurrence: None)
  Receive Date: 20111214
  Receipt Date: 20111206
  Transmission Date: 20120403
  Serious: Yes (Hospitalization)
  Sender: FDA-Public Use
  Company Number: US-BIOGENIDEC-2011BI041553

PATIENT
  Age: 51 Year
  Sex: Female

DRUGS (2)
  1. TYSABRI [Suspect]
     Route: 042
     Dates: start: 20081204, end: 20100806
  2. TYSABRI [Suspect]
     Indication: MULTIPLE SCLEROSIS
     Route: 042
     Dates: start: 20110415

REACTIONS (13)
  - DYSPNOEA [None]
  - HEADACHE [None]
  - ABDOMINAL PAIN UPPER [None]
  - BALANCE DISORDER [None]
  - PRURITUS [None]
  - DIARRHOEA [None]
  - DIZZINESS [None]
  - BLOOD PRESSURE DECREASED [None]
  - FATIGUE [None]
  - NAUSEA [None]
  - PAIN IN EXTREMITY [None]
  - CONSTIPATION [None]
  - CHILLS [None]
